FAERS Safety Report 18731211 (Version 2)
Quarter: 2021Q1

REPORT INFORMATION
  Report Type: Other
  Country: US (occurrence: US)
  Receive Date: 20210112
  Receipt Date: 20210115
  Transmission Date: 20210419
  Serious: Yes (Other)
  Sender: FDA-Public Use
  Company Number: US-ROCHE-2248537

PATIENT
  Sex: Female

DRUGS (3)
  1. VALCYTE [Suspect]
     Active Substance: VALGANCICLOVIR HYDROCHLORIDE
     Dosage: TAKE 1 TAB PO, MONDAY, WEDNESDAY, FRIDAY
     Route: 048
  2. CELLCEPT [Suspect]
     Active Substance: MYCOPHENOLATE MOFETIL\MYCOPHENOLATE MOFETIL HYDROCHLORIDE
     Indication: LUNG TRANSPLANT
     Dosage: 250MG CAPSULE.
     Route: 048
     Dates: start: 201901
  3. VALCYTE [Suspect]
     Active Substance: VALGANCICLOVIR HYDROCHLORIDE
     Indication: LUNG TRANSPLANT
     Dosage: INCOMPLETE PRESCRIPTION; MARKED ^OTHER^?450MG TAB
     Route: 048

REACTIONS (3)
  - Off label use [Unknown]
  - Blindness [Unknown]
  - Intentional product use issue [Unknown]
